FAERS Safety Report 15642849 (Version 1)
Quarter: 2018Q4

REPORT INFORMATION
  Report Type: Spontaneous
  Country: US (occurrence: US)
  Receive Date: 20181121
  Receipt Date: 20181121
  Transmission Date: 20190205
  Serious: Yes (Other)
  Sender: FDA-Public Use
  Company Number: US-BAYER-2018-214851

PATIENT
  Age: 78 Year
  Sex: Female
  Weight: 34 kg

DRUGS (1)
  1. MIRALAX [Suspect]
     Active Substance: POLYETHYLENE GLYCOL 3350
     Indication: GASTROINTESTINAL DISORDER
     Dosage: UNK
     Route: 048
     Dates: start: 20181111, end: 20181119

REACTIONS (3)
  - Abnormal faeces [None]
  - Constipation [Unknown]
  - Flatulence [Unknown]

NARRATIVE: CASE EVENT DATE: 20181115
